FAERS Safety Report 11428973 (Version 1)
Quarter: 2015Q3

REPORT INFORMATION
  Report Type: Spontaneous
  Country: US (occurrence: US)
  Receive Date: 20150828
  Receipt Date: 20150828
  Transmission Date: 20151125
  Serious: No
  Sender: FDA-Public Use
  Company Number: US-ROCHE-1208618

PATIENT

DRUGS (3)
  1. PEGASYS [Suspect]
     Active Substance: PEGINTERFERON ALFA-2A
     Indication: PRODUCT USED FOR UNKNOWN INDICATION
     Dosage: PATIENT CONTINUED THERAPY UNTIL WEEK 25
     Route: 065
  2. RIBAVIRIN. [Concomitant]
     Active Substance: RIBAVIRIN
     Dosage: PATIENT CONTINUED THERAPY UNTIL WEEK 25
     Route: 065
  3. VICTRELIS [Concomitant]
     Active Substance: BOCEPREVIR
     Dosage: PATIENT CONTINUED THERAPY UNTIL WEEK 25
     Route: 065

REACTIONS (1)
  - Rash [Unknown]
